FAERS Safety Report 8062752-1 (Version None)
Quarter: 2012Q1

REPORT INFORMATION
  Report Type: 
  Country: None (occurrence: None)
  Receive Date: 20120123
  Receipt Date: 20120116
  Transmission Date: 20120608
  Serious: Yes (Hospitalization)
  Sender: FDA-Public Use
  Company Number: GB-PFIZER INC-2012012584

PATIENT
  Sex: Female

DRUGS (1)
  1. DEPO-PROVERA [Suspect]

REACTIONS (1)
  - PERICARDITIS [None]
